FAERS Safety Report 18883885 (Version 1)
Quarter: 2021Q1

REPORT INFORMATION
  Report Type: Spontaneous
  Country: AR (occurrence: AR)
  Receive Date: 20210211
  Receipt Date: 20210211
  Transmission Date: 20210420
  Serious: Yes (Other)
  Sender: FDA-Public Use
  Company Number: AR-JNJFOC-20210209503

PATIENT
  Age: 34 Year
  Sex: Female

DRUGS (4)
  1. TRIATOP [Suspect]
     Active Substance: KETOCONAZOLE
     Route: 065
  2. MEPREDNISONE [Suspect]
     Active Substance: MEPREDNISONE
     Indication: HYPERCALCAEMIA
     Dosage: AND DECREASED TO LEAS  THAN 4 MG/DAY
     Route: 065
  3. ALENDRONATE [Suspect]
     Active Substance: ALENDRONATE SODIUM
     Indication: HYPERCALCAEMIA
     Route: 065
  4. TRIATOP [Suspect]
     Active Substance: KETOCONAZOLE
     Indication: HYPERCALCAEMIA
     Route: 065

REACTIONS (4)
  - Adrenal insufficiency [Recovered/Resolved]
  - Product use in unapproved indication [Unknown]
  - Oligomenorrhoea [Recovered/Resolved]
  - Off label use [Unknown]
